FAERS Safety Report 9607442 (Version 2)
Quarter: 2013Q4

REPORT INFORMATION
  Report Type: Spontaneous
  Country: AU (occurrence: AU)
  Receive Date: 20131009
  Receipt Date: 20131009
  Transmission Date: 20140711
  Serious: Yes (Other)
  Sender: FDA-Public Use
  Company Number: AU-ACCORD-019783

PATIENT
  Age: 49 Year
  Sex: Male
  Weight: 102 kg

DRUGS (7)
  1. GEMCITABINE [Suspect]
     Indication: PANCREATIC CARCINOMA
     Route: 042
  2. FLUOROURACIL [Suspect]
     Indication: PANCREATIC CARCINOMA
     Route: 042
  3. NOVORAPID [Concomitant]
     Indication: DIABETES MELLITUS
     Dosage: 10, 10 AND 12 UNITS
  4. LIPITOR [Concomitant]
     Indication: HYPERLIPIDAEMIA
  5. LANTUS [Concomitant]
     Indication: DIABETES MELLITUS
     Dosage: 26 UNITS AT NIGHT
  6. CREON [Concomitant]
     Indication: PANCREATIC INSUFFICIENCY
     Dosage: 25,000 UNITS WITH MEALS
  7. PANTOPRAZOLE [Concomitant]
     Indication: PROPHYLAXIS

REACTIONS (4)
  - Nausea [Unknown]
  - Anxiety [Recovering/Resolving]
  - Fatigue [Recovered/Resolved]
  - Stress [Unknown]
